FAERS Safety Report 23940934 (Version 1)
Quarter: 2024Q2

REPORT INFORMATION
  Report Type: Other
  Country: CL (occurrence: None)
  Receive Date: 20240605
  Receipt Date: 20240605
  Transmission Date: 20240716
  Serious: No
  Sender: FDA-Public Use
  Company Number: CL-ROCHE-3576736

PATIENT
  Age: 25 Year
  Sex: Male
  Weight: 94 kg

DRUGS (2)
  1. OCRELIZUMAB [Suspect]
     Active Substance: OCRELIZUMAB
     Indication: Multiple sclerosis
     Route: 042
     Dates: start: 2021
  2. VITAMIN C [Concomitant]
     Active Substance: ASCORBIC ACID
     Dosage: 1 TABLET A DAY
     Dates: start: 2021

REACTIONS (2)
  - COVID-19 [Recovered/Resolved]
  - Nasopharyngitis [Recovered/Resolved]

NARRATIVE: CASE EVENT DATE: 20220130
